FAERS Safety Report 12907848 (Version 3)
Quarter: 2016Q4

REPORT INFORMATION
  Report Type: Spontaneous
  Country: GB (occurrence: GB)
  Receive Date: 20161103
  Receipt Date: 20161109
  Transmission Date: 20170207
  Serious: Yes (Hospitalization, Other)
  Sender: FDA-Public Use
  Company Number: GB-PFIZER INC-2016506485

PATIENT
  Age: 85 Year
  Sex: Female

DRUGS (6)
  1. CEFTAZIDIME. [Suspect]
     Active Substance: CEFTAZIDIME
     Indication: OSTEOMYELITIS
     Dosage: 2 G, 3X/DAY
     Route: 042
     Dates: start: 20150930, end: 201511
  2. MEROPENEM. [Suspect]
     Active Substance: MEROPENEM
     Indication: PNEUMONIA
     Dosage: UNK
     Dates: start: 201511, end: 201511
  3. AUGMENTIN [Suspect]
     Active Substance: AMOXICILLIN\CLAVULANATE POTASSIUM
     Indication: OSTEOMYELITIS
     Dosage: UNK
     Dates: start: 20150916, end: 20150923
  4. TEMOCILLIN [Suspect]
     Active Substance: TEMOCILLIN
     Indication: PNEUMONIA
     Dosage: UNK
     Dates: start: 201510, end: 201511
  5. TAZOCIN [Suspect]
     Active Substance: PIPERACILLIN SODIUM\TAZOBACTAM SODIUM
     Dosage: UNK
     Dates: start: 201509, end: 20151001
  6. AMOXICILLIN. [Suspect]
     Active Substance: AMOXICILLIN
     Indication: PNEUMONIA
     Dosage: UNK
     Dates: start: 201510, end: 201510

REACTIONS (6)
  - Confusional state [Recovered/Resolved]
  - Coma scale abnormal [Recovered/Resolved]
  - Status epilepticus [Recovered/Resolved]
  - Pyrexia [Recovered/Resolved]
  - Neurotoxicity [Recovered/Resolved]
  - Acute kidney injury [Recovered/Resolved]
